FAERS Safety Report 8991908 (Version 1)
Quarter: 2012Q4

REPORT INFORMATION
  Report Type: 
  Country: JP (occurrence: JP)
  Receive Date: 20121231
  Receipt Date: 20121231
  Transmission Date: 20130627
  Serious: Yes (Death, Other)
  Sender: FDA-Public Use
  Company Number: JP-ROCHE-1173881

PATIENT
  Age: 84 Year
  Sex: Female

DRUGS (6)
  1. XELODA [Suspect]
     Indication: COLON CANCER METASTATIC
     Dosage: Dosage is uncertain.
     Route: 048
  2. XELODA [Suspect]
     Dosage: Dosage is uncertain.
     Route: 048
  3. OXALIPLATIN [Concomitant]
     Indication: COLON CANCER METASTATIC
     Dosage: Dosage is uncertain.
     Route: 041
  4. 5-FU [Concomitant]
     Indication: COLON CANCER METASTATIC
     Dosage: Dosage is uncertain.
     Route: 041
  5. 5-FU [Concomitant]
     Dosage: Dosage is uncertain.
     Route: 040
  6. LEVOFOLINATE [Concomitant]
     Indication: COLON CANCER METASTATIC
     Dosage: Dosage is uncertain.
     Route: 041

REACTIONS (4)
  - Disease progression [Fatal]
  - Tumour thrombosis [Unknown]
  - Metastases to kidney [Unknown]
  - Herpes zoster [Recovered/Resolved]
